FAERS Safety Report 7202992-4 (Version None)
Quarter: 2010Q4

REPORT INFORMATION
  Report Type: 
  Country: None (occurrence: None)
  Receive Date: 20101229
  Receipt Date: 20101228
  Transmission Date: 20110411
  Serious: Yes (Hospitalization, Other)
  Sender: FDA-Public Use
  Company Number: US-CEPHALON-2010006399

PATIENT
  Sex: Female
  Weight: 68 kg

DRUGS (10)
  1. TREANDA [Suspect]
     Indication: DIFFUSE LARGE B-CELL LYMPHOMA
     Route: 042
     Dates: start: 20101118, end: 20101119
  2. RITUXAN [Suspect]
     Indication: DIFFUSE LARGE B-CELL LYMPHOMA
     Route: 042
     Dates: start: 20101118, end: 20101118
  3. PEPCID [Concomitant]
  4. METFORMIN [Concomitant]
     Dates: end: 20101209
  5. IRON SULFATETHIAMIN COMPOUND TAB [Concomitant]
  6. ZOFRAN [Concomitant]
  7. HYDROCODONE [Concomitant]
  8. REGLAN [Concomitant]
  9. ACYCLOVIR SODIUM [Concomitant]
  10. ALLOPURINOL [Concomitant]

REACTIONS (15)
  - ADRENAL INSUFFICIENCY [None]
  - ATELECTASIS [None]
  - CARDIAC FAILURE CONGESTIVE [None]
  - DEHYDRATION [None]
  - HYPOKALAEMIA [None]
  - LEUKOCYTOSIS [None]
  - LIVER FUNCTION TEST ABNORMAL [None]
  - MICROCYTIC ANAEMIA [None]
  - NAUSEA [None]
  - PLEURAL EFFUSION [None]
  - PNEUMONIA [None]
  - PYREXIA [None]
  - SUPRAVENTRICULAR TACHYCARDIA [None]
  - URINARY TRACT INFECTION [None]
  - VOMITING [None]
